FAERS Safety Report 24173462 (Version 3)
Quarter: 2025Q3

REPORT INFORMATION
  Report Type: Spontaneous
  Country: US (occurrence: US)
  Receive Date: 20240805
  Receipt Date: 20250925
  Transmission Date: 20251021
  Serious: Yes (Disabling, Other)
  Sender: AMGEN
  Company Number: US-AMGEN-USASP2024153119

PATIENT
  Age: 55 Year
  Sex: Female

DRUGS (42)
  1. TEPEZZA [Suspect]
     Active Substance: TEPROTUMUMAB-TRBW
     Indication: Endocrine ophthalmopathy
     Dosage: 1000 MILLIGRAM, QD
     Route: 042
     Dates: start: 20210806, end: 20210806
  2. TEPEZZA [Suspect]
     Active Substance: TEPROTUMUMAB-TRBW
     Indication: Graves^ disease
     Dosage: 2000 MILLIGRAM, QD
     Route: 042
     Dates: start: 20210827, end: 20210827
  3. TEPEZZA [Suspect]
     Active Substance: TEPROTUMUMAB-TRBW
     Dosage: 2000 MILLIGRAM, QD
     Route: 042
     Dates: start: 20210917, end: 20210917
  4. TEPEZZA [Suspect]
     Active Substance: TEPROTUMUMAB-TRBW
     Dosage: 1983.81 MILLIGRAM, QD
     Route: 042
     Dates: start: 20211008, end: 20211008
  5. TEPEZZA [Suspect]
     Active Substance: TEPROTUMUMAB-TRBW
     Dosage: 1896.19 MILLIGRAM, QD
     Route: 042
     Dates: start: 20211203, end: 20211203
  6. VITAMIN D3 [Concomitant]
     Active Substance: CHOLECALCIFEROL
     Route: 065
     Dates: start: 20210203
  7. VASOTEC [Concomitant]
     Active Substance: ENALAPRIL MALEATE
     Dosage: 20 MILLIGRAM, QD
     Route: 048
     Dates: start: 20210203, end: 20240312
  8. HYDRODIURIL [Concomitant]
     Active Substance: HYDROCHLOROTHIAZIDE
     Dosage: 25 MILLIGRAM, QD
     Route: 048
     Dates: start: 20210203, end: 20241101
  9. XYZAL [Concomitant]
     Active Substance: LEVOCETIRIZINE DIHYDROCHLORIDE
     Dosage: 5 MILLIGRAM, QD (EVERY EVENING)
     Route: 048
  10. SYNTHROID [Concomitant]
     Active Substance: LEVOTHYROXINE SODIUM
     Dosage: 125 MICROGRAM, QD (EVERY MORNING)
     Route: 048
     Dates: start: 20161202
  11. SYNTHROID [Concomitant]
     Active Substance: LEVOTHYROXINE SODIUM
     Route: 065
     Dates: start: 20210203
  12. SYNTHROID [Concomitant]
     Active Substance: LEVOTHYROXINE SODIUM
     Dosage: 125 MICROGRAM, QD (EVERY MORNING)
     Route: 048
     Dates: end: 20210825
  13. SYNTHROID [Concomitant]
     Active Substance: LEVOTHYROXINE SODIUM
     Dosage: 200 MICROGRAM, QD (EVERY MORNING)
     Route: 048
  14. MAGNESIUM [Concomitant]
     Active Substance: MAGNESIUM
     Route: 048
     Dates: start: 20210203, end: 20230706
  15. TOPROL XL [Concomitant]
     Active Substance: METOPROLOL SUCCINATE
     Dosage: 50 MILLIGRAM, BID
     Route: 048
     Dates: start: 20210203
  16. FLONASE [Concomitant]
     Active Substance: FLUTICASONE PROPIONATE
     Dosage: UNK, QD ADMINISTER 1 SPRAY INTO EACH NOSTRIL
     Route: 045
     Dates: end: 20230712
  17. RESTASIS [Concomitant]
     Active Substance: CYCLOSPORINE
     Dosage: UNK, Q12H 1 DROP INTO BOTH EYES
     Route: 047
     Dates: end: 20211217
  18. ACIDOPHILUS [Concomitant]
     Active Substance: LACTOBACILLUS ACIDOPHILUS
     Dosage: UNK, QD
     Route: 048
     Dates: end: 20230706
  19. VITAMINS [Concomitant]
     Active Substance: VITAMINS
     Dosage: UNK, QD  (2 TABLETS)
     Route: 048
     Dates: end: 20240712
  20. REFRESH CELLUVISC [Concomitant]
     Active Substance: CARBOXYMETHYLCELLULOSE SODIUM
     Dosage: UNK, Q4H (1 DROP INTO BOTH EYES)
     Route: 047
     Dates: end: 20230706
  21. COSOPT [Concomitant]
     Active Substance: DORZOLAMIDE HYDROCHLORIDE\TIMOLOL MALEATE
     Dosage: UNK, BID (INSTILL 1 DROP INTO BOTH EYES TWICE DAILY)
     Route: 047
     Dates: start: 20210414, end: 20210706
  22. SINGULAIR [Concomitant]
     Active Substance: MONTELUKAST SODIUM
     Dosage: 10 MILLIGRAM, QD (1 TABLET EVERY EVENING)
     Route: 048
     Dates: end: 20250317
  23. SALINE [Concomitant]
     Active Substance: SODIUM CHLORIDE
     Dosage: 79 MILLILITER, QD
     Route: 042
     Dates: start: 20210806
  24. SALINE [Concomitant]
     Active Substance: SODIUM CHLORIDE
     Dosage: 20.16 MILLILITER, QD
     Route: 042
     Dates: start: 20210827
  25. SALINE [Concomitant]
     Active Substance: SODIUM CHLORIDE
     Dosage: 208 MILLIGRAM, QD
     Route: 042
     Dates: start: 20210917
  26. SALINE [Concomitant]
     Active Substance: SODIUM CHLORIDE
     Dosage: 208.34 MILLILITER, QD
     Route: 042
     Dates: start: 20211008
  27. SALINE [Concomitant]
     Active Substance: SODIUM CHLORIDE
     Dosage: 210.18 MILLILITER, QD
     Route: 042
     Dates: start: 20211203
  28. BENADRYL [Concomitant]
     Active Substance: DIPHENHYDRAMINE HYDROCHLORIDE
     Route: 042
     Dates: start: 20210806
  29. BENADRYL [Concomitant]
     Active Substance: DIPHENHYDRAMINE HYDROCHLORIDE
     Route: 042
     Dates: start: 20210806
  30. SOLU-CORTEF [Concomitant]
     Active Substance: HYDROCORTISONE SODIUM SUCCINATE
     Route: 042
     Dates: start: 20210806
  31. PEPCID [Concomitant]
     Active Substance: FAMOTIDINE
     Route: 042
     Dates: start: 20210806
  32. PROVENTIL [Concomitant]
     Active Substance: ALBUTEROL
     Dates: start: 20210806
  33. ALBUTEROL [Concomitant]
     Active Substance: ALBUTEROL
     Dates: start: 20210806
  34. ADRENALIN [Concomitant]
     Active Substance: EPINEPHRINE
     Route: 030
     Dates: start: 20210806
  35. DEMEROL [Concomitant]
     Active Substance: MEPERIDINE HYDROCHLORIDE
     Route: 042
     Dates: start: 20210806
  36. TOPROL XL [Concomitant]
     Active Substance: METOPROLOL SUCCINATE
     Dosage: 50 MILLIGRAM, BID
     Route: 048
  37. GLUCOPHAGE XR [Concomitant]
     Active Substance: METFORMIN HYDROCHLORIDE
     Dosage: 500 MILLIGRAM, QD (IN THE EVENING)
     Route: 048
     Dates: end: 20250317
  38. DRISDOL [Concomitant]
     Active Substance: ERGOCALCIFEROL
     Dosage: 1250 MICROGRAM, QWK (50,000 UNIT)
     Route: 048
  39. Romycin [Concomitant]
     Route: 047
     Dates: start: 20231120, end: 20241211
  40. IMDUR [Concomitant]
     Active Substance: ISOSORBIDE MONONITRATE
     Dosage: 30 MILLIGRAM, QD (EVERY MORNING)
     Route: 048
     Dates: start: 20240312, end: 20241211
  41. LOTENSIN [Concomitant]
     Active Substance: BENAZEPRIL HYDROCHLORIDE
     Dosage: 20 MILLIGRAM, QD
     Route: 048
     Dates: start: 20240312, end: 20250326
  42. ELIQUIS [Concomitant]
     Active Substance: APIXABAN
     Dosage: 5 MILLIGRAM, BID
     Route: 048
     Dates: start: 20240513, end: 20241212

REACTIONS (16)
  - Graves^ disease [Unknown]
  - Endocrine ophthalmopathy [Unknown]
  - Deafness neurosensory [Not Recovered/Not Resolved]
  - Blood glucose increased [Unknown]
  - Blood pressure systolic increased [Unknown]
  - Pain [Unknown]
  - Emotional distress [Unknown]
  - Anxiety [Unknown]
  - Impaired quality of life [Unknown]
  - Discomfort [Unknown]
  - Product use complaint [Unknown]
  - Ear pain [Unknown]
  - Dizziness [Unknown]
  - Blood urea nitrogen/creatinine ratio increased [Unknown]
  - Alanine aminotransferase increased [Unknown]
  - Balance disorder [Unknown]

NARRATIVE: CASE EVENT DATE: 20210806
